FAERS Safety Report 7956114-2 (Version None)
Quarter: 2011Q4

REPORT INFORMATION
  Report Type: 
  Country: None (occurrence: None)
  Receive Date: 20111205
  Receipt Date: 20111121
  Transmission Date: 20120403
  Serious: Yes (Other)
  Sender: FDA-Public Use
  Company Number: FR-ELI_LILLY_AND_COMPANY-FR201111007549

PATIENT
  Age: 76 Year
  Sex: Male

DRUGS (2)
  1. PROZAC [Suspect]
     Dosage: 20 MG, QD
     Route: 048
  2. PROZAC [Suspect]
     Dosage: 20 MG, 5 OUT OF 7 DAYS
     Route: 048

REACTIONS (1)
  - DIABETES MELLITUS [None]
